FAERS Safety Report 8000765-6 (Version None)
Quarter: 2011Q4

REPORT INFORMATION
  Report Type: 
  Country: None (occurrence: None)
  Receive Date: 20111222
  Receipt Date: 20111212
  Transmission Date: 20120403
  Serious: Yes (Death)
  Sender: FDA-Public Use
  Company Number: US-JNJFOC-20101200577

PATIENT
  Sex: Female
  Weight: 72.58 kg

DRUGS (6)
  1. STEROIDS NOS [Concomitant]
     Indication: PREMEDICATION
     Dates: start: 20021119, end: 20100323
  2. ACETAMINOPHEN [Concomitant]
     Indication: PREMEDICATION
     Dates: start: 20021119, end: 20100323
  3. REMICADE [Suspect]
     Indication: CROHN'S DISEASE
     Dosage: 10 DOSES
     Route: 042
  4. NARCOTIC ANALGESICS, NOS [Concomitant]
     Indication: CROHN'S DISEASE
  5. ANTIHISTAMINE [Concomitant]
     Indication: PREMEDICATION
     Dates: start: 20021119, end: 20100323
  6. REMICADE [Suspect]
     Dosage: 50 INFUSIONS
     Route: 042
     Dates: start: 20021119, end: 20100323

REACTIONS (2)
  - ARRHYTHMIA [None]
  - MYOCARDIAL ISCHAEMIA [None]
